FAERS Safety Report 17505113 (Version 1)
Quarter: 2020Q1

REPORT INFORMATION
  Report Type: Spontaneous
  Country: US (occurrence: US)
  Receive Date: 20200306
  Receipt Date: 20200306
  Transmission Date: 20200409
  Serious: Yes (Hospitalization, Other)
  Sender: FDA-Public Use
  Company Number: US-SNT-000001

PATIENT
  Age: 15 Year
  Sex: Male

DRUGS (2)
  1. BUPROPION. [Suspect]
     Active Substance: BUPROPION
     Indication: PRODUCT USED FOR UNKNOWN INDICATION
     Dosage: INGESTION OF 60 TABLETS.
     Route: 048
  2. VILAZODONE [Suspect]
     Active Substance: VILAZODONE
     Indication: PRODUCT USED FOR UNKNOWN INDICATION
     Dosage: INGESTION OF 30 TABLETS.
     Route: 048

REACTIONS (12)
  - Memory impairment [Recovering/Resolving]
  - Intentional overdose [Unknown]
  - Tremor [Unknown]
  - Brain injury [Unknown]
  - Hippocampal atrophy [Unknown]
  - Serotonin syndrome [Unknown]
  - Hallucination [Unknown]
  - Pyrexia [Unknown]
  - Partial seizures [Unknown]
  - Hypoxia [Unknown]
  - Hypotension [Unknown]
  - Injury [Unknown]
